FAERS Safety Report 14842428 (Version 1)
Quarter: 2018Q2

REPORT INFORMATION
  Report Type: Spontaneous
  Country: BR (occurrence: BR)
  Receive Date: 20180503
  Receipt Date: 20180503
  Transmission Date: 20180711
  Serious: No
  Sender: FDA-Public Use
  Company Number: BR-JNJFOC-20180421910

PATIENT

DRUGS (2)
  1. USTEKINUMAB [Suspect]
     Active Substance: USTEKINUMAB
     Indication: PSORIATIC ARTHROPATHY
     Route: 058
  2. USTEKINUMAB [Suspect]
     Active Substance: USTEKINUMAB
     Indication: PSORIASIS
     Route: 058

REACTIONS (7)
  - Sinusitis [Unknown]
  - Alanine aminotransferase increased [Unknown]
  - Leukocytosis [Unknown]
  - Aspartate aminotransferase increased [Unknown]
  - Upper respiratory tract infection [Unknown]
  - Candida infection [Unknown]
  - Urinary tract infection [Unknown]
